FAERS Safety Report 9921877 (Version 1)
Quarter: 2014Q1

REPORT INFORMATION
  Report Type: Other
  Country: US (occurrence: US)
  Receive Date: 20140225
  Receipt Date: 20140225
  Transmission Date: 20141002
  Serious: Yes (Other)
  Sender: FDA-Public Use
  Company Number: US-BRISTOL-MYERS SQUIBB COMPANY-20232591

PATIENT
  Age: 67 Year
  Sex: Male

DRUGS (11)
  1. METFORMIN HCL [Suspect]
  2. AMOXICILLIN [Suspect]
     Indication: TOOTH EXTRACTION
     Dosage: TAB
     Dates: start: 201202
  3. AMOXICILLIN [Suspect]
     Indication: ENDOCARDITIS PROPHYLAXIS
     Dosage: TAB
     Dates: start: 201202
  4. LISINOPRIL [Suspect]
  5. NIACIN [Suspect]
     Dates: start: 201205
  6. ASPIRIN [Concomitant]
  7. AMLODIPINE [Concomitant]
  8. METOPROLOL [Concomitant]
  9. GLIPIZIDE [Concomitant]
  10. INSULIN [Concomitant]
  11. VITAMINS [Concomitant]

REACTIONS (1)
  - Angioedema [Recovered/Resolved]
